FAERS Safety Report 5473376-4 (Version None)
Quarter: 2007Q4

REPORT INFORMATION
  Report Type: 
  Country: None (occurrence: None)
  Receive Date: 20071001
  Receipt Date: 20070927
  Transmission Date: 20080405
  Serious: Yes (Hospitalization)
  Sender: FDA-Public Use
  Company Number: FR-BRISTOL-MYERS SQUIBB COMPANY-13921622

PATIENT
  Age: 34 Year
  Sex: Male

DRUGS (3)
  1. SUSTIVA [Suspect]
     Dates: start: 20030315
  2. COMBIVIR [Suspect]
     Dates: start: 20011015
  3. NORSET [Suspect]

REACTIONS (1)
  - PULMONARY EMBOLISM [None]
